FAERS Safety Report 23564737 (Version 1)
Quarter: 2024Q1

REPORT INFORMATION
  Report Type: Report from Study
  Country: EG (occurrence: EG)
  Receive Date: 20240226
  Receipt Date: 20240226
  Transmission Date: 20240410
  Serious: Yes (Hospitalization, Other)
  Sender: FDA-Public Use
  Company Number: EG-JNJFOC-20240255325

PATIENT

DRUGS (2)
  1. HALOPERIDOL DECANOATE [Suspect]
     Active Substance: HALOPERIDOL DECANOATE
     Indication: Toxicity to various agents
     Route: 065
  2. RISPERDAL [Suspect]
     Active Substance: RISPERIDONE
     Indication: Toxicity to various agents
     Route: 065

REACTIONS (7)
  - Electrocardiogram QT prolonged [Unknown]
  - Respiratory failure [Unknown]
  - Respiratory distress [Unknown]
  - Hospitalisation [Unknown]
  - Cardiotoxicity [Unknown]
  - Gastrointestinal disorder [Unknown]
  - Nervous system disorder [Unknown]
